FAERS Safety Report 11469149 (Version 1)
Quarter: 2015Q3

REPORT INFORMATION
  Report Type: Spontaneous
  Country: CN (occurrence: CN)
  Receive Date: 20150908
  Receipt Date: 20150908
  Transmission Date: 20151125
  Serious: Yes (Other)
  Sender: FDA-Public Use
  Company Number: CN-PFIZER INC-2015291032

PATIENT

DRUGS (1)
  1. MEDROL [Suspect]
     Active Substance: METHYLPREDNISOLONE
     Indication: NEPHROTIC SYNDROME
     Dosage: 2 TABLETS
     Route: 048

REACTIONS (9)
  - Nephrotic syndrome [Unknown]
  - Suspected counterfeit product [Unknown]
  - Condition aggravated [Unknown]
  - Blood sodium decreased [Unknown]
  - Diarrhoea [Unknown]
  - Drug ineffective [Unknown]
  - Localised intraabdominal fluid collection [Unknown]
  - Product physical issue [Unknown]
  - Vomiting [Unknown]
